FAERS Safety Report 7305962-0 (Version None)
Quarter: 2011Q1

REPORT INFORMATION
  Report Type: 
  Country: None (occurrence: None)
  Receive Date: 20110209
  Receipt Date: 20110124
  Transmission Date: 20110831
  Serious: Yes (Death)
  Sender: FDA-Public Use
  Company Number: AMAG201100010

PATIENT
  Age: 83 Year
  Sex: Male
  Weight: 82.5 kg

DRUGS (8)
  1. GLIPIZIDE [Concomitant]
  2. ASPIRIN [Concomitant]
  3. ZOMETA [Concomitant]
  4. METFORMIN (METFORMIN) [Concomitant]
  5. FERAHEME [Suspect]
     Indication: IRON DEFICIENCY ANAEMIA
     Dosage: 510 MG, SINGLE, INTRAVENOUS
     Route: 042
     Dates: start: 20110121, end: 20110121
  6. ATENOLOL [Concomitant]
  7. LUPRON [Concomitant]
  8. CASODEX [Concomitant]

REACTIONS (15)
  - HYPERTENSION [None]
  - DEPRESSED LEVEL OF CONSCIOUSNESS [None]
  - PULSE ABNORMAL [None]
  - PULSE PRESSURE DECREASED [None]
  - RESPIRATORY DISTRESS [None]
  - BLOOD PRESSURE IMMEASURABLE [None]
  - PULSE ABSENT [None]
  - VENTRICULAR TACHYCARDIA [None]
  - ACIDOSIS [None]
  - ERYTHEMA [None]
  - FOAMING AT MOUTH [None]
  - LOSS OF CONSCIOUSNESS [None]
  - BLOOD GLUCOSE INCREASED [None]
  - CARDIO-RESPIRATORY ARREST [None]
  - PULMONARY EMBOLISM [None]
